FAERS Safety Report 8911590 (Version 2)
Quarter: 2012Q4

REPORT INFORMATION
  Report Type: 
  Country: GB (occurrence: GB)
  Receive Date: 20121116
  Receipt Date: 20121126
  Transmission Date: 20130627
  Serious: Yes (Hospitalization, Other)
  Sender: FDA-Public Use
  Company Number: GB-PFIZER INC-GBWYE399204FEB05

PATIENT
  Age: 69 Year

DRUGS (3)
  1. IBUPROFEN [Suspect]
     Indication: ARTHRITIS
     Dosage: 400 mg, UNK
     Route: 048
     Dates: end: 20041231
  2. LISINOPRIL [Suspect]
     Indication: HYPERTENSION
     Dosage: 5 mg, UNK
     Route: 048
     Dates: end: 20041231
  3. BENDROFLUMETHIAZIDE [Concomitant]
     Dosage: 2.5 mg, UNK
     Route: 048
     Dates: end: 20041231

REACTIONS (2)
  - Gastrooesophageal reflux disease [Recovering/Resolving]
  - Renal failure acute [Recovering/Resolving]
